FAERS Safety Report 16651721 (Version 3)
Quarter: 2019Q3

REPORT INFORMATION
  Report Type: Report from Study
  Country: CA (occurrence: CA)
  Receive Date: 20190731
  Receipt Date: 20190905
  Transmission Date: 20191004
  Serious: Yes (Other)
  Sender: FDA-Public Use
  Company Number: CA-JNJFOC-20190625822

PATIENT
  Age: 70 Year
  Sex: Male

DRUGS (1)
  1. SIMPONI [Suspect]
     Active Substance: GOLIMUMAB
     Indication: COLITIS ULCERATIVE
     Route: 058
     Dates: start: 20180914

REACTIONS (5)
  - Diarrhoea haemorrhagic [Unknown]
  - Weight decreased [Unknown]
  - Therapeutic response decreased [Unknown]
  - Gastrointestinal inflammation [Unknown]
  - Influenza [Unknown]

NARRATIVE: CASE EVENT DATE: 201906
